FAERS Safety Report 11930352 (Version 1)
Quarter: 2016Q1

REPORT INFORMATION
  Report Type: Spontaneous
  Country: US (occurrence: None)
  Receive Date: 20160120
  Receipt Date: 20160120
  Transmission Date: 20160526
  Serious: No
  Sender: FDA-Public Use
  Company Number: None

PATIENT
  Age: 70 Year
  Sex: Male
  Weight: 93.4 kg

DRUGS (2)
  1. BOTULINUM TOXIN TYPE A [Suspect]
     Active Substance: BOTULINUM TOXIN TYPE A
     Indication: FACIAL SPASM
     Dosage: 100 UNITS OTHER
  2. LISINOPRIL. [Suspect]
     Active Substance: LISINOPRIL
     Indication: HYPERTENSION
     Route: 048
     Dates: start: 20110919, end: 20150718

REACTIONS (4)
  - Diplopia [None]
  - Vision blurred [None]
  - No reaction on previous exposure to drug [None]
  - Angioedema [None]

NARRATIVE: CASE EVENT DATE: 20150718
